FAERS Safety Report 7266318-2 (Version None)
Quarter: 2011Q1

REPORT INFORMATION
  Report Type: 
  Country: None (occurrence: None)
  Receive Date: 20110131
  Receipt Date: 20110127
  Transmission Date: 20110831
  Serious: Yes (Other)
  Sender: FDA-Public Use
  Company Number: US-PFIZER INC-2011020438

PATIENT
  Sex: Female
  Weight: 72.562 kg

DRUGS (4)
  1. XANAX [Concomitant]
     Indication: REHABILITATION THERAPY
     Dosage: UNK
     Route: 048
     Dates: start: 19890101, end: 19890101
  2. NAVANE [Suspect]
     Indication: PANIC ATTACK
     Dosage: UNK
     Route: 048
     Dates: start: 19890101
  3. SYNTHROID [Concomitant]
     Indication: THYROID DISORDER
     Dosage: UNK
     Route: 048
  4. NAVANE [Suspect]
     Indication: FEAR

REACTIONS (4)
  - WEIGHT INCREASED [None]
  - DRY MOUTH [None]
  - BARRETT'S OESOPHAGUS [None]
  - COUGH [None]
